FAERS Safety Report 5604674-9 (Version None)
Quarter: 2008Q1

REPORT INFORMATION
  Report Type: 
  Country: None (occurrence: None)
  Receive Date: 20080124
  Receipt Date: 20080124
  Transmission Date: 20080703
  Serious: No
  Sender: FDA-Public Use
  Company Number: None

PATIENT
  Age: 28 Year
  Sex: Female
  Weight: 54.4316 kg

DRUGS (1)
  1. ARICEPT [Suspect]
     Indication: ILLITERACY
     Dosage: 5MG DAILY PO
     Route: 048
     Dates: start: 20080106, end: 20080110

REACTIONS (2)
  - DYSPNOEA [None]
  - NASAL CONGESTION [None]
